FAERS Safety Report 7108852-1 (Version None)
Quarter: 2010Q4

REPORT INFORMATION
  Report Type: 
  Country: None (occurrence: None)
  Receive Date: 20101104
  Receipt Date: 20101027
  Transmission Date: 20110411
  Serious: Yes (Hospitalization)
  Sender: FDA-Public Use
  Company Number: WAES 1002USA00417

PATIENT
  Age: 56 Year
  Sex: Male

DRUGS (10)
  1. CLINORIL [Suspect]
     Indication: BACK PAIN
     Dosage: 200 MG BID PO
     Route: 048
     Dates: start: 20100107
  2. TARCEVA [Suspect]
     Indication: NON-SMALL CELL LUNG CANCER
     Dosage: 150 MG/DAILY PO
     Route: 048
     Dates: start: 20090916
  3. STUDY DRUG (UNSPECIFIED) [Suspect]
     Indication: NON-SMALL CELL LUNG CANCER
     Dosage: 1384 MG/1X
     Dates: start: 20090916
  4. MUCAINE [Concomitant]
  5. ULTRACET [Concomitant]
  6. BACITRACIN (+) NEOMYCIN SULFATE [Concomitant]
  7. CODEINE PHOSPHATE [Concomitant]
  8. ESTAZOLAM [Concomitant]
  9. MORPHINE [Concomitant]
  10. SENNOSIDES [Concomitant]

REACTIONS (4)
  - GASTROINTESTINAL HAEMORRHAGE [None]
  - HAEMOGLOBIN DECREASED [None]
  - OSTEOMYELITIS [None]
  - STAPHYLOCOCCAL SEPSIS [None]
